FAERS Safety Report 14395769 (Version 1)
Quarter: 2018Q1

REPORT INFORMATION
  Report Type: Spontaneous
  Country: None (occurrence: US)
  Receive Date: 20180116
  Receipt Date: 20180116
  Transmission Date: 20180509
  Serious: No
  Sender: FDA-Public Use
  Company Number: US-ALLERGAN-1713000US

PATIENT
  Age: 71 Year

DRUGS (1)
  1. BOTOX [Suspect]
     Active Substance: ONABOTULINUMTOXINA
     Indication: PRODUCT USED FOR UNKNOWN INDICATION
     Dosage: 100 UNITS, SINGLE
     Route: 043
     Dates: start: 20170222, end: 20170222

REACTIONS (1)
  - Reduced bladder capacity [Unknown]

NARRATIVE: CASE EVENT DATE: 201605
